FAERS Safety Report 13159925 (Version 1)
Quarter: 2017Q1

REPORT INFORMATION
  Report Type: Report from Study
  Country: FR (occurrence: FR)
  Receive Date: 20170127
  Receipt Date: 20170127
  Transmission Date: 20170428
  Serious: Yes (Other)
  Sender: FDA-Public Use
  Company Number: FR-PFIZER INC-2017028075

PATIENT
  Age: 72 Year
  Sex: Female

DRUGS (6)
  1. LEVOXYL [Suspect]
     Active Substance: LEVOTHYROXINE SODIUM
     Indication: HEADACHE
     Dosage: 25 MG, DAILY
  2. NARAMIG [Suspect]
     Active Substance: NARATRIPTAN HYDROCHLORIDE
     Indication: MIGRAINE
     Dosage: 2.5 MG, DAILY
  3. SPIFEN [Concomitant]
     Active Substance: IBUPROFEN
     Dosage: UNK
  4. BIMAGRUMAB [Suspect]
     Active Substance: BIMAGRUMAB
     Indication: SARCOPENIA
     Dosage: UNK
     Route: 042
     Dates: start: 20161104
  5. ENALAPRIL [Concomitant]
     Active Substance: ENALAPRIL
     Dosage: UNK
  6. VESICARE [Concomitant]
     Active Substance: SOLIFENACIN SUCCINATE
     Dosage: UNK

REACTIONS (1)
  - Hepatic enzyme increased [Not Recovered/Not Resolved]

NARRATIVE: CASE EVENT DATE: 20161104
